FAERS Safety Report 8470998-3 (Version None)
Quarter: 2012Q2

REPORT INFORMATION
  Report Type: 
  Country: None (occurrence: None)
  Receive Date: 20120627
  Receipt Date: 20120615
  Transmission Date: 20120825
  Serious: No
  Sender: FDA-Public Use
  Company Number: US-ELI_LILLY_AND_COMPANY-US201203007579

PATIENT
  Sex: Female
  Weight: 51.247 kg

DRUGS (13)
  1. LEVOTHYROXINE [Concomitant]
     Dosage: 137 MG, QD
  2. MIRAPEX [Concomitant]
     Dosage: 75 MG, QD
  3. OXYCODONE HCL [Concomitant]
     Dosage: 5 MG, UNK
  4. GEMFIBROZIL [Concomitant]
     Dosage: 600 MG, BID
  5. IRON [Concomitant]
     Dosage: 227 MG, BID
  6. TEMAZEP [Concomitant]
     Dosage: 30 MG, QD
  7. THEOLAIR [Concomitant]
     Dosage: 2000 MG, BID
  8. DONEPEZIL HCL [Concomitant]
     Dosage: 5 MG, QD
  9. FISH OIL [Concomitant]
     Dosage: 1200 MG, UNK
  10. FORTEO [Suspect]
     Indication: OSTEOPOROSIS
     Dosage: 20 UG, QD
     Dates: start: 20120301
  11. XANAX [Concomitant]
     Dosage: 0.5 MG, PRN
  12. LEXAPRO [Concomitant]
     Dosage: 10 MG, QD
  13. VITAMIN B-12 [Concomitant]
     Dosage: 125 MG, QD

REACTIONS (7)
  - BONE DISORDER [None]
  - ADVERSE EVENT [None]
  - DRUG DOSE OMISSION [None]
  - MALAISE [None]
  - PAIN IN EXTREMITY [None]
  - BACK PAIN [None]
  - MOBILITY DECREASED [None]
